FAERS Safety Report 5202600-8 (Version None)
Quarter: 2006Q4

REPORT INFORMATION
  Report Type: 
  Country: None (occurrence: None)
  Receive Date: 20061018
  Receipt Date: 20050517
  Transmission Date: 20070319
  Serious: Yes (Other)
  Sender: FDA-Public Use
  Company Number: PHEH2005US05566

PATIENT
  Age: 73 Year
  Sex: Female

DRUGS (2)
  1. ZOMETA [Suspect]
     Indication: METASTASES TO BONE
     Dosage: 4 MG PER MONTH, INFUSION
     Dates: start: 20020601
  2. PREDNISONE TAB [Concomitant]

REACTIONS (3)
  - ALVEOLOPLASTY [None]
  - BONE DISORDER [None]
  - TOOTH EXTRACTION [None]
